FAERS Safety Report 24624425 (Version 1)
Quarter: 2024Q4

REPORT INFORMATION
  Report Type: Spontaneous
  Country: CN (occurrence: CN)
  Receive Date: 20241115
  Receipt Date: 20241115
  Transmission Date: 20250115
  Serious: Yes (Life-Threatening)
  Sender: GE HEALTHCARE
  Company Number: CN-GE HEALTHCARE-2024CSU013141

PATIENT
  Age: 56 Year
  Sex: Female
  Weight: 66 kg

DRUGS (1)
  1. OMNIPAQUE [Suspect]
     Active Substance: IOHEXOL
     Indication: Computerised tomogram pelvis
     Dosage: 100 ML, TOTAL
     Route: 042
     Dates: start: 20241103, end: 20241103

REACTIONS (7)
  - Stridor [Recovering/Resolving]
  - Dyspnoea [Recovering/Resolving]
  - Oxygen saturation decreased [Recovering/Resolving]
  - Cyanosis [Recovering/Resolving]
  - Hyperhidrosis [Recovering/Resolving]
  - Heart rate increased [Recovering/Resolving]
  - Contrast media allergy [Recovering/Resolving]

NARRATIVE: CASE EVENT DATE: 20241103
